FAERS Safety Report 19392049 (Version 1)
Quarter: 2021Q2

REPORT INFORMATION
  Report Type: Spontaneous
  Country: ID (occurrence: ID)
  Receive Date: 20210608
  Receipt Date: 20210608
  Transmission Date: 20210717
  Serious: Yes (Death)
  Sender: FDA-Public Use
  Company Number: ID-PFIZER INC-2021604069

PATIENT
  Age: 57 Year
  Sex: Female

DRUGS (4)
  1. DUROGESIC [Concomitant]
     Active Substance: FENTANYL
     Dosage: 25 UG
  2. IBRANCE [Suspect]
     Active Substance: PALBOCICLIB
     Dosage: 125 MG, 1X/DAY
     Dates: start: 202011
  3. LETROZOL [Concomitant]
     Active Substance: LETROZOLE
     Dosage: 2.5 MG, 1X/DAY
     Dates: start: 202011
  4. MST CONTIN [Concomitant]
     Dosage: 10 MG, 2X/DAY

REACTIONS (6)
  - Haematocrit decreased [Unknown]
  - Death [Fatal]
  - White blood cell count decreased [Unknown]
  - Pain [Unknown]
  - Chest discomfort [Unknown]
  - Haemoglobin decreased [Unknown]

NARRATIVE: CASE EVENT DATE: 20201221
